FAERS Safety Report 20170754 (Version 1)
Quarter: 2021Q4

REPORT INFORMATION
  Report Type: Spontaneous
  Country: US (occurrence: US)
  Receive Date: 20211210
  Receipt Date: 20211210
  Transmission Date: 20220303
  Serious: Yes (Hospitalization)
  Sender: FDA-Public Use
  Company Number: US-BIOVITRUM-2021US11753

PATIENT
  Sex: Male
  Weight: 7 kg

DRUGS (4)
  1. SYNAGIS [Suspect]
     Active Substance: PALIVIZUMAB
     Indication: Bronchopulmonary dysplasia
     Route: 030
  2. POLY-VITA WITH IRON 10 MG/ML DROPS [Concomitant]
  3. SYNAGIS [Suspect]
     Active Substance: PALIVIZUMAB
     Indication: Premature baby
  4. SYMBICORT 80-4.5 MCG HFA AER AD [Concomitant]

REACTIONS (1)
  - Respiratory syncytial virus infection [Unknown]
